FAERS Safety Report 11919698 (Version 1)
Quarter: 2016Q1

REPORT INFORMATION
  Report Type: Spontaneous
  Country: US (occurrence: None)
  Receive Date: 20160114
  Receipt Date: 20160114
  Transmission Date: 20160526
  Serious: No
  Sender: FDA-Public Use
  Company Number: None

PATIENT
  Age: 35 Year
  Sex: Female
  Weight: 53.07 kg

DRUGS (1)
  1. ADVANCE WHITE EXTREME WHITENING TARTAR CONTROL [Suspect]
     Active Substance: SODIUM FLUORIDE
     Indication: DENTAL CARE
     Dates: start: 20160101, end: 20160113

REACTIONS (4)
  - Drug hypersensitivity [None]
  - Stomatitis [None]
  - Chapped lips [None]
  - Erythema [None]

NARRATIVE: CASE EVENT DATE: 20160113
